FAERS Safety Report 15562661 (Version 1)
Quarter: 2018Q4

REPORT INFORMATION
  Report Type: Spontaneous
  Country: SI (occurrence: SI)
  Receive Date: 20181029
  Receipt Date: 20181029
  Transmission Date: 20190205
  Serious: Yes (Hospitalization)
  Sender: FDA-Public Use
  Company Number: SI-LPDUSPRD-20181962

PATIENT
  Age: 55 Year
  Sex: Female

DRUGS (7)
  1. BISOPROLOL [Suspect]
     Active Substance: BISOPROLOL
     Dosage: INCREASED DOSE: UNSPECIFIED
     Route: 065
  2. ACETYLSALICYLIC ACID [Suspect]
     Active Substance: ASPIRIN
     Dosage: 100 MG, UNK AT NOON (100 MG)
     Route: 065
  3. PERINDOPRIL [Suspect]
     Active Substance: PERINDOPRIL
     Dosage: 2 MG,UNK IN THE MORNING (2 MG)
     Route: 065
  4. LEVOTHYROXINE. [Suspect]
     Active Substance: LEVOTHYROXINE
     Dosage: 100 MCG, UNK (100 MCG)
     Route: 065
  5. LEVOSIMENDAN [Suspect]
     Active Substance: LEVOSIMENDAN
     Dosage: UNKNOWN
     Route: 065
  6. FERINJECT [Suspect]
     Active Substance: FERRIC CARBOXYMALTOSE
     Dosage: UNKNOWN
     Route: 042
  7. ENTRESTO [Suspect]
     Active Substance: SACUBITRIL\VALSARTAN
     Dosage: 50 MG, Q12 H (50 MG, 12 HR)
     Route: 065

REACTIONS (7)
  - Cardiac failure chronic [Not Recovered/Not Resolved]
  - Glomerular filtration rate decreased [Unknown]
  - Contraindicated product administered [Unknown]
  - Blood pressure decreased [Unknown]
  - Infection [Unknown]
  - Blood creatinine increased [Unknown]
  - Prohormone brain natriuretic peptide increased [Unknown]
